FAERS Safety Report 8722648 (Version 2)
Quarter: 2013Q1

REPORT INFORMATION
  Report Type: Spontaneous
  Country: GB (occurrence: GB)
  Receive Date: 20120814
  Receipt Date: 20130315
  Transmission Date: 20140127
  Serious: Yes (Other)
  Sender: FDA-Public Use
  Company Number: GB-ABBOTT-12P-167-0966294-00

PATIENT
  Sex: Male
  Weight: 56.4 kg

DRUGS (1)
  1. HUMIRA 40 MG/ 0.8 ML PRE-FILLED SYRINGE [Suspect]
     Indication: PSORIASIS
     Dosage: 2/52 (1 EVERY 2 WEEKS)
     Route: 058
     Dates: start: 201206

REACTIONS (3)
  - Rhinitis allergic [Recovering/Resolving]
  - Rhinorrhoea [Unknown]
  - Local reaction [Unknown]
